FAERS Safety Report 18046265 (Version 5)
Quarter: 2020Q4

REPORT INFORMATION
  Report Type: Report from Study
  Country: None (occurrence: US)
  Receive Date: 20200721
  Receipt Date: 20201120
  Transmission Date: 20210113
  Serious: Yes (Hospitalization)
  Sender: FDA-Public Use
  Company Number: US-ABBVIE-20K-163-3362427-00

PATIENT
  Age: 61 Year
  Sex: Female
  Weight: 93.07 kg

DRUGS (3)
  1. HUMIRA [Suspect]
     Active Substance: ADALIMUMAB
     Route: 058
     Dates: start: 202004
  2. HUMIRA [Suspect]
     Active Substance: ADALIMUMAB
     Indication: HIDRADENITIS
     Route: 058
     Dates: start: 201802
  3. HUMIRA [Suspect]
     Active Substance: ADALIMUMAB
     Route: 058
     Dates: start: 2019, end: 202003

REACTIONS (14)
  - Uterine prolapse [Recovering/Resolving]
  - Pollakiuria [Recovering/Resolving]
  - Muscle spasms [Recovering/Resolving]
  - Drug ineffective [Recovering/Resolving]
  - Rash macular [Recovering/Resolving]
  - Rash [Not Recovered/Not Resolved]
  - White blood cell count increased [Unknown]
  - Pain of skin [Recovering/Resolving]
  - Weight decreased [Recovering/Resolving]
  - Hidradenitis [Recovering/Resolving]
  - Bladder discomfort [Recovering/Resolving]
  - Bladder prolapse [Unknown]
  - Pyrexia [Recovered/Resolved]
  - Rash macular [Not Recovered/Not Resolved]

NARRATIVE: CASE EVENT DATE: 2019
